FAERS Safety Report 7548158-X (Version None)
Quarter: 2011Q2

REPORT INFORMATION
  Report Type: 
  Country: None (occurrence: None)
  Receive Date: 20110524
  Receipt Date: 20110201
  Transmission Date: 20111010
  Serious: No
  Sender: FDA-Public Use
  Company Number: 026699

PATIENT
  Sex: Female
  Weight: 68 kg

DRUGS (5)
  1. CIMZIA [Suspect]
     Indication: CROHN'S DISEASE
     Dosage: 2 SYRINGES SUBCUTANEOUS
     Route: 058
     Dates: start: 20101105
  2. NEXIUM [Concomitant]
  3. AMITRIPTYLINE [Concomitant]
  4. TOPAMAX [Concomitant]
  5. METHOTREXATE [Concomitant]

REACTIONS (2)
  - FATIGUE [None]
  - ABDOMINAL PAIN [None]
